FAERS Safety Report 8963099 (Version 2)
Quarter: 2013Q1

REPORT INFORMATION
  Report Type: Spontaneous
  Country: US (occurrence: None)
  Receive Date: 20121127
  Receipt Date: 20121203
  Transmission Date: 20140127
  Serious: Yes (Hospitalization, Other)
  Sender: FDA-Public Use
  Company Number: 2012033987

PATIENT
  Age: 43 Year
  Sex: Male

DRUGS (3)
  1. IVIG [Suspect]
     Indication: GUILLAIN-BARRE SYNDROME
     Route: 042
  2. ANTIRETROVIRAL THERAPY [Suspect]
  3. PHENYTOIN (PHENTOIN) [Concomitant]

REACTIONS (8)
  - Convulsion [None]
  - Pyrexia [None]
  - Headache [None]
  - Treatment noncompliance [None]
  - CSF protein increased [None]
  - Guillain-Barre syndrome [None]
  - Drug ineffective for unapproved indication [None]
  - Immune reconstitution inflammatory syndrome [None]
